FAERS Safety Report 7366932-X (Version None)
Quarter: 2011Q1

REPORT INFORMATION
  Report Type: 
  Country: None (occurrence: None)
  Receive Date: 20110322
  Receipt Date: 20110311
  Transmission Date: 20110831
  Serious: Yes (Life-Threatening)
  Sender: FDA-Public Use
  Company Number: B0707040A

PATIENT
  Age: 50 Year
  Sex: Female

DRUGS (3)
  1. ARIXTRA [Suspect]
     Dosage: 2.5MG PER DAY
     Route: 058
     Dates: end: 20110310
  2. ANTIHYPERTENSIVE (UNSPECIFIED) [Concomitant]
  3. ANTIDIABETIC (UNSPECIFIED) [Concomitant]

REACTIONS (2)
  - HYPOVOLAEMIC SHOCK [None]
  - WOUND HAEMORRHAGE [None]
